APPROVED DRUG PRODUCT: GLUCOVANCE
Active Ingredient: GLYBURIDE; METFORMIN HYDROCHLORIDE
Strength: 2.5MG;500MG **Federal Register determination that product was not discontinued or withdrawn for safety or effectiveness reasons**
Dosage Form/Route: TABLET;ORAL
Application: N021178 | Product #002
Applicant: BRISTOL MYERS SQUIBB
Approved: Jul 31, 2000 | RLD: Yes | RS: No | Type: DISCN